FAERS Safety Report 11772520 (Version 2)
Quarter: 2015Q4

REPORT INFORMATION
  Report Type: Spontaneous
  Country: DE (occurrence: DE)
  Receive Date: 20151124
  Receipt Date: 20151215
  Transmission Date: 20160304
  Serious: Yes (Hospitalization, Other)
  Sender: FDA-Public Use
  Company Number: DE-AMGEN-DEUSP2015124388

PATIENT
  Age: 79 Year
  Sex: Male
  Weight: 80 kg

DRUGS (1)
  1. ENBREL [Suspect]
     Active Substance: ETANERCEPT
     Indication: PSORIATIC ARTHROPATHY
     Dosage: 50 MG, EVERY 14 DAYS
     Route: 058
     Dates: start: 20121024

REACTIONS (10)
  - Mitral valve incompetence [Recovered/Resolved]
  - Atrioventricular block first degree [Recovered/Resolved]
  - Spinal osteoarthritis [Recovered/Resolved]
  - Bronchitis [Recovered/Resolved]
  - Aortic valve sclerosis [Recovered/Resolved]
  - Pneumonia [Recovered/Resolved]
  - Diastolic dysfunction [Recovered/Resolved]
  - C-reactive protein increased [Recovered/Resolved]
  - Oedema peripheral [Recovered/Resolved]
  - Hearing impaired [Not Recovered/Not Resolved]

NARRATIVE: CASE EVENT DATE: 20151014
